FAERS Safety Report 4936302-X (Version None)
Quarter: 2006Q1

REPORT INFORMATION
  Report Type: 
  Country: None (occurrence: None)
  Receive Date: 20060127
  Receipt Date: 20051115
  Transmission Date: 20060701
  Serious: Yes (Other)
  Sender: FDA-Public Use
  Company Number: 2005157825

PATIENT
  Age: 40 Year
  Sex: Male
  Weight: 131.5431 kg

DRUGS (3)
  1. LYRICA [Suspect]
     Indication: ILL-DEFINED DISORDER
     Dosage: 150 MG (50 MG,3 IN 1 D),ORAL
     Route: 048
     Dates: start: 20051105, end: 20051111
  2. VIDODIN (HYDROCODONE BITARTRATE, PARACETAMOL) [Concomitant]
  3. CYMBALTA [Concomitant]

REACTIONS (11)
  - AGITATION [None]
  - ARTHRALGIA [None]
  - BURNING SENSATION [None]
  - CHEST PAIN [None]
  - DRUG ADMINISTRATION ERROR [None]
  - MIGRAINE [None]
  - PAIN [None]
  - PAIN IN EXTREMITY [None]
  - PARAESTHESIA [None]
  - TREMOR [None]
  - VISION BLURRED [None]
